FAERS Safety Report 4637138-X (Version None)
Quarter: 2005Q2

REPORT INFORMATION
  Report Type: 
  Country: None (occurrence: None)
  Receive Date: 20050325
  Receipt Date: 20050124
  Transmission Date: 20051028
  Serious: No
  Sender: FDA-Public Use
  Company Number: USA040876473

PATIENT
  Age: 81 Year
  Sex: Male
  Weight: 65 kg

DRUGS (3)
  1. FORTEO [Suspect]
     Indication: OSTEOPOROSIS
     Dosage: 20 UG/1 DAY
     Dates: start: 20040401
  2. DILANTIN [Concomitant]
  3. VITAMINS [Concomitant]

REACTIONS (4)
  - DECREASED ACTIVITY [None]
  - FALL [None]
  - FEELING ABNORMAL [None]
  - WRIST FRACTURE [None]
